FAERS Safety Report 12939113 (Version 3)
Quarter: 2016Q4

REPORT INFORMATION
  Report Type: Spontaneous
  Country: US (occurrence: US)
  Receive Date: 20161115
  Receipt Date: 20161129
  Transmission Date: 20170207
  Serious: Yes (Other)
  Sender: FDA-Public Use
  Company Number: US-ROCHE-1853405

PATIENT
  Sex: Male

DRUGS (2)
  1. KLONOPIN [Suspect]
     Active Substance: CLONAZEPAM
     Dosage: 1 MG IN THE MORNING AND AT BEDTIME
     Route: 048
     Dates: end: 20161116
  2. KLONOPIN [Suspect]
     Active Substance: CLONAZEPAM
     Indication: PRODUCT USED FOR UNKNOWN INDICATION
     Dosage: 1 MILLIGRAM A DAY
     Route: 048

REACTIONS (6)
  - Disturbance in attention [Unknown]
  - Psychotic disorder [Unknown]
  - Tremor [Unknown]
  - Abnormal dreams [Unknown]
  - Abnormal behaviour [Unknown]
  - Panic disorder [Unknown]
